FAERS Safety Report 11045702 (Version 2)
Quarter: 2015Q2

REPORT INFORMATION
  Report Type: Spontaneous
  Country: DE (occurrence: DE)
  Receive Date: 20150417
  Receipt Date: 20150501
  Transmission Date: 20150821
  Serious: Yes (Hospitalization, Other)
  Sender: FDA-Public Use
  Company Number: DE-PFIZER INC-2015102032

PATIENT
  Age: 66 Year
  Sex: Male
  Weight: 91 kg

DRUGS (6)
  1. SORTIS [Suspect]
     Active Substance: ATORVASTATIN
     Indication: CORONARY ARTERY DISEASE
  2. SORTIS [Suspect]
     Active Substance: ATORVASTATIN
     Indication: HYPERCHOLESTEROLAEMIA
  3. BISOPROLOL [Concomitant]
     Active Substance: BISOPROLOL
     Dosage: 5 MG, UNK
     Dates: start: 1994
  4. RAMIPRIL. [Concomitant]
     Active Substance: RAMIPRIL
     Dosage: UNK
     Dates: start: 1994
  5. SORTIS [Suspect]
     Active Substance: ATORVASTATIN
     Indication: VASCULAR GRAFT
     Dosage: 10 MG, DAILY
     Dates: start: 2002, end: 20150305
  6. HYDROCHLOROTHIAZIDE. [Concomitant]
     Active Substance: HYDROCHLOROTHIAZIDE
     Dosage: UNK
     Dates: start: 2002

REACTIONS (7)
  - Tendonitis [Not Recovered/Not Resolved]
  - Fall [Unknown]
  - Tendon rupture [Not Recovered/Not Resolved]
  - Tendon injury [Not Recovered/Not Resolved]
  - Blood creatine phosphokinase increased [Unknown]
  - Myalgia [Unknown]
  - Tendon rupture [Not Recovered/Not Resolved]

NARRATIVE: CASE EVENT DATE: 2013
